FAERS Safety Report 15582192 (Version 1)
Quarter: 2018Q4

REPORT INFORMATION
  Report Type: Spontaneous
  Country: US (occurrence: US)
  Receive Date: 20181105
  Receipt Date: 20181105
  Transmission Date: 20190205
  Serious: No
  Sender: FDA-Public Use
  Company Number: US-ELI_LILLY_AND_COMPANY-US201810015308

PATIENT
  Sex: Male

DRUGS (3)
  1. HUMALOG [Suspect]
     Active Substance: INSULIN LISPRO
     Dosage: UNK UNK, UNKNOWN
     Route: 058
  2. HUMALOG [Suspect]
     Active Substance: INSULIN LISPRO
     Indication: DIABETES MELLITUS
     Dosage: UNK UNK, UNKNOWN
     Route: 058
     Dates: start: 2011
  3. LANTUS [Concomitant]
     Active Substance: INSULIN GLARGINE
     Indication: PRODUCT USED FOR UNKNOWN INDICATION

REACTIONS (2)
  - Visual impairment [Not Recovered/Not Resolved]
  - Pain [Not Recovered/Not Resolved]

NARRATIVE: CASE EVENT DATE: 2013
